FAERS Safety Report 6721157-3 (Version None)
Quarter: 2010Q2

REPORT INFORMATION
  Report Type: 
  Country: None (occurrence: None)
  Receive Date: 20100512
  Receipt Date: 20100426
  Transmission Date: 20101027
  Serious: No
  Sender: FDA-Public Use
  Company Number: US-BAYER-201014730BCC

PATIENT
  Age: 94 Year
  Sex: Male
  Weight: 77 kg

DRUGS (7)
  1. ALEVE (CAPLET) [Suspect]
     Indication: ARTHRALGIA
     Dosage: BOTTLE COUNT 100S
     Route: 048
     Dates: start: 20091201, end: 20100301
  2. LESCOL [Concomitant]
     Route: 065
  3. CENTRUM [Concomitant]
     Route: 065
  4. EQUATE ACETAMINOPHEN [Concomitant]
     Route: 065
  5. GLUCOSAMINE AND CONDROITIN TRIPLE STRENGHT [Concomitant]
     Route: 065
  6. LOTENSIN [Concomitant]
     Route: 065
  7. CARDURA [Concomitant]
     Route: 065

REACTIONS (5)
  - BALANCE DISORDER [None]
  - BURNING SENSATION [None]
  - CHEST PAIN [None]
  - DIZZINESS [None]
  - RASH [None]
